FAERS Safety Report 8277141-4 (Version None)
Quarter: 2012Q2

REPORT INFORMATION
  Report Type: 
  Country: None (occurrence: None)
  Receive Date: 20120412
  Receipt Date: 20120406
  Transmission Date: 20120825
  Serious: Yes (Hospitalization)
  Sender: FDA-Public Use
  Company Number: FR-PFIZER INC-2012086894

PATIENT
  Age: 76 Year
  Sex: Female

DRUGS (11)
  1. FLUOROURACIL [Suspect]
     Indication: BREAST CANCER
     Dosage: UNK, 6 CYCLES
     Route: 042
     Dates: start: 19981001, end: 19990101
  2. NOLVADEX [Suspect]
     Indication: BREAST CANCER
     Dosage: 1 DF, 1X/DAY
     Route: 048
     Dates: start: 19910101, end: 20040101
  3. FEMARA [Suspect]
     Indication: BREAST CANCER
     Dosage: 1 DF, 1X/DAY
     Dates: start: 20040101, end: 20090101
  4. CYCLOPHOSPHAMIDE [Suspect]
     Indication: BREAST CANCER
     Dosage: UNK, 6 CYCLES
     Route: 048
     Dates: start: 19981001, end: 19990101
  5. ANAFRANIL [Concomitant]
  6. EXFORGE [Concomitant]
  7. AROMASIN [Suspect]
     Indication: BREAST CANCER
     Dosage: 1 DF, 1X/DAY
     Route: 048
     Dates: start: 20110305
  8. LEXOMIL [Concomitant]
  9. FENOFIBRATE [Concomitant]
  10. PREVISCAN [Concomitant]
     Dosage: UNK
     Dates: start: 20110601
  11. EPIRUBICIN HYDROCHLORIDE [Suspect]
     Indication: BREAST CANCER
     Dosage: UNK, 6 CYCLES
     Route: 042
     Dates: start: 19981001, end: 19990101

REACTIONS (2)
  - CHRONIC LYMPHOCYTIC LEUKAEMIA [None]
  - NEOPLASM MALIGNANT [None]
